FAERS Safety Report 9711277 (Version 2)
Quarter: 2013Q4

REPORT INFORMATION
  Report Type: Spontaneous
  Country: US (occurrence: US)
  Receive Date: 20131126
  Receipt Date: 20131129
  Transmission Date: 20140711
  Serious: Yes (Other)
  Sender: FDA-Public Use
  Company Number: US-RB-060056-13

PATIENT
  Age: 11 Year
  Sex: Female

DRUGS (2)
  1. MUCINEX FAST-MAX COLD, FLU AND SORE THROAT CAPLETS [Suspect]
     Indication: PRODUCT USED FOR UNKNOWN INDICATION
     Dosage: DRUG STOPPED ON 11-NOV-2013, 1 WHOLE CAPLET
     Route: 048
     Dates: start: 20131111
  2. CONCERTA [Concomitant]
     Indication: ATTENTION DEFICIT/HYPERACTIVITY DISORDER
     Dosage: UNKNOWN

REACTIONS (14)
  - Blindness transient [Recovered/Resolved]
  - Hearing impaired [Recovered/Resolved]
  - Speech disorder [Recovered/Resolved]
  - Incoherent [Recovered/Resolved]
  - Malaise [Recovered/Resolved]
  - Malaise [Recovered/Resolved]
  - Unevaluable event [Recovered/Resolved]
  - Staring [Recovered/Resolved]
  - Visual impairment [Recovered/Resolved]
  - Screaming [Recovered/Resolved]
  - Irritability [Recovered/Resolved]
  - Headache [Recovered/Resolved]
  - Accidental exposure to product [Recovered/Resolved]
  - Abdominal pain upper [Recovered/Resolved]
